FAERS Safety Report 6555826-5 (Version None)
Quarter: 2010Q1

REPORT INFORMATION
  Report Type: 
  Country: None (occurrence: None)
  Receive Date: 20100128
  Receipt Date: 20100121
  Transmission Date: 20100710
  Serious: Yes (Other)
  Sender: FDA-Public Use
  Company Number: US-BAYER-201012206NA

PATIENT
  Sex: Female

DRUGS (1)
  1. MIRENA [Suspect]
     Indication: CHEMICAL CONTRACEPTION
     Dosage: CONTINUED
     Route: 015
     Dates: start: 20091019

REACTIONS (2)
  - DEVICE DISLOCATION [None]
  - VAGINAL HAEMORRHAGE [None]
